FAERS Safety Report 4617969-2 (Version None)
Quarter: 2005Q1

REPORT INFORMATION
  Report Type: 
  Country: None (occurrence: None)
  Receive Date: 20050322
  Receipt Date: 20050314
  Transmission Date: 20050727
  Serious: Yes (Hospitalization)
  Sender: FDA-Public Use
  Company Number: 2005044465

PATIENT
  Age: 69 Year
  Sex: Male

DRUGS (5)
  1. SORTIS (ATORVASTATIN) [Suspect]
     Indication: ILL-DEFINED DISORDER
     Dosage: 20 MG (1 D), ORAL
     Route: 048
     Dates: end: 20050301
  2. EZETIMIBE (EZETIMIBE) [Concomitant]
  3. CLOPIDOGREL BISULFATE [Concomitant]
  4. CANDESARTAN CILEXETIL (CANDESARTAN CILEXETIL) [Concomitant]
  5. PHENPROCOUMON (PHENPROCOUMON) [Concomitant]

REACTIONS (4)
  - CHROMATURIA [None]
  - HEPATIC FAILURE [None]
  - NUCLEAR MAGNETIC RESONANCE IMAGING ABNORMAL [None]
  - PANCREATITIS [None]
